FAERS Safety Report 21143255 (Version 2)
Quarter: 2022Q3

REPORT INFORMATION
  Report Type: Spontaneous
  Country: US (occurrence: US)
  Receive Date: 20220728
  Receipt Date: 20220810
  Transmission Date: 20221027
  Serious: Yes (Life-Threatening, Hospitalization)
  Sender: FDA-Public Use
  Company Number: US-TEVA-2022-US-2057845

PATIENT
  Age: 67 Year
  Sex: Female

DRUGS (6)
  1. MYCOPHENOLATE MOFETIL [Suspect]
     Active Substance: MYCOPHENOLATE MOFETIL
     Indication: Connective tissue disorder
     Dosage: 2000 MILLIGRAM DAILY;
     Route: 065
  2. HYDROXYCHLOROQUINE [Suspect]
     Active Substance: HYDROXYCHLOROQUINE
     Indication: Connective tissue disorder
     Dosage: 400 MILLIGRAM DAILY;
     Route: 065
  3. PREDNISONE [Suspect]
     Active Substance: PREDNISONE
     Indication: Connective tissue disorder
     Dosage: 5 MILLIGRAM DAILY;
     Route: 065
  4. CASIRIVIMAB\IMDEVIMAB [Suspect]
     Active Substance: CASIRIVIMAB\IMDEVIMAB
     Indication: COVID-19
     Route: 065
  5. METHYLPREDNISOLONE [Suspect]
     Active Substance: METHYLPREDNISOLONE
     Indication: COVID-19
     Route: 042
  6. TOCILIZUMAB [Suspect]
     Active Substance: TOCILIZUMAB
     Indication: COVID-19
     Route: 065

REACTIONS (10)
  - COVID-19 [Recovering/Resolving]
  - Pulmonary embolism [Recovering/Resolving]
  - Acute kidney injury [Recovering/Resolving]
  - Retroperitoneal haematoma [Recovered/Resolved]
  - Haematoma muscle [Recovered/Resolved]
  - Disseminated intravascular coagulation [Recovering/Resolving]
  - Confusional state [Recovering/Resolving]
  - Hyporesponsive to stimuli [Recovering/Resolving]
  - Off label use [Unknown]
  - Drug ineffective [Unknown]
